FAERS Safety Report 6997537-8 (Version None)
Quarter: 2010Q3

REPORT INFORMATION
  Report Type: 
  Country: None (occurrence: None)
  Receive Date: 20100918
  Receipt Date: 20091026
  Transmission Date: 20110219
  Serious: No
  Sender: FDA-Public Use
  Company Number: US-WYE-H11859409

PATIENT
  Sex: Female

DRUGS (7)
  1. PRISTIQ [Suspect]
     Indication: DEPRESSION
     Route: 048
     Dates: start: 20091005, end: 20091018
  2. PRISTIQ [Suspect]
     Route: 048
     Dates: start: 20091019
  3. ALPRAZOLAM [Concomitant]
  4. SINGULAIR [Concomitant]
  5. ALBUTEROL [Concomitant]
  6. WELLBUTRIN [Concomitant]
  7. ADVAIR DISKUS 100/50 [Concomitant]

REACTIONS (9)
  - ABDOMINAL DISCOMFORT [None]
  - ABNORMAL DREAMS [None]
  - ANXIETY [None]
  - ASTHMA [None]
  - CONDITION AGGRAVATED [None]
  - CONFUSIONAL STATE [None]
  - DRUG WITHDRAWAL SYNDROME [None]
  - MYALGIA [None]
  - UNEVALUABLE EVENT [None]
